FAERS Safety Report 5914631-0 (Version None)
Quarter: 2008Q4

REPORT INFORMATION
  Report Type: 
  Country: None (occurrence: None)
  Receive Date: 20081010
  Receipt Date: 20080828
  Transmission Date: 20090506
  Serious: No
  Sender: FDA-Public Use
  Company Number: A0739906A

PATIENT
  Age: 65 Year
  Sex: Male

DRUGS (5)
  1. REQUIP XL [Suspect]
     Indication: RESTLESS LEGS SYNDROME
     Dosage: 2MG PER DAY
     Route: 048
     Dates: start: 20080723, end: 20080724
  2. LIPITOR [Concomitant]
  3. ASPIRIN [Concomitant]
  4. FLOMAX [Concomitant]
  5. VITAMINS [Concomitant]

REACTIONS (2)
  - ILL-DEFINED DISORDER [None]
  - TREMOR [None]
